FAERS Safety Report 9021316 (Version 1)
Quarter: 2013Q1

REPORT INFORMATION
  Report Type: Spontaneous
  Country: US (occurrence: US)
  Receive Date: 20130119
  Receipt Date: 20130119
  Transmission Date: 20140127
  Serious: No
  Sender: FDA-Public Use
  Company Number: US-ALLERGAN-1200754US

PATIENT
  Age: 48 None
  Sex: Female
  Weight: 56.24 kg

DRUGS (10)
  1. BOTOX? [Suspect]
     Indication: HEADACHE
     Dosage: 10 UNITS, SINGLE
     Route: 030
     Dates: start: 20111201, end: 20111201
  2. BOTOX? [Suspect]
     Dosage: 5 UNITS, SINGLE
     Dates: start: 20111201, end: 20111201
  3. BOTOX? [Suspect]
     Dosage: 20 UNITS, UNK
     Dates: start: 20111201, end: 20111201
  4. BOTOX? [Suspect]
     Dosage: 40 UNITS, UNK
     Dates: start: 20111201, end: 20111201
  5. BOTOX? [Suspect]
     Dosage: 30 UNITS, UNK
     Dates: start: 20111201, end: 20111201
  6. BOTOX? [Suspect]
     Dosage: 20 UNITS, UNK
     Dates: start: 20111201, end: 20111201
  7. BOTOX? [Suspect]
     Dosage: 30 UNITS, SINGLE
     Dates: start: 20111201, end: 20111201
  8. NAMENDA [Concomitant]
     Indication: PRODUCT USED FOR UNKNOWN INDICATION
     Dosage: 10 MG, BID
  9. ADDERALL [Concomitant]
     Indication: PRODUCT USED FOR UNKNOWN INDICATION
     Dosage: 30 MG, BID
  10. PRISTIQ [Concomitant]
     Indication: PRODUCT USED FOR UNKNOWN INDICATION
     Dosage: 50 MG, QD

REACTIONS (3)
  - Neck pain [Recovered/Resolved]
  - Headache [Not Recovered/Not Resolved]
  - Neck pain [Not Recovered/Not Resolved]
